FAERS Safety Report 8176629-4 (Version None)
Quarter: 2012Q1

REPORT INFORMATION
  Report Type: 
  Country: None (occurrence: None)
  Receive Date: 20120301
  Receipt Date: 20120222
  Transmission Date: 20120608
  Serious: Yes (Other)
  Sender: FDA-Public Use
  Company Number: US-SANOFI-AVENTIS-2012SA012383

PATIENT
  Sex: Female

DRUGS (1)
  1. SELENIUM SULFIDE [Suspect]
     Route: 061
     Dates: start: 20120216, end: 20120217

REACTIONS (5)
  - BURNING SENSATION [None]
  - EYE SWELLING [None]
  - LYMPHADENOPATHY [None]
  - HYPERSENSITIVITY [None]
  - BLISTER [None]
